FAERS Safety Report 6056236-X (Version None)
Quarter: 2009Q1

REPORT INFORMATION
  Report Type: 
  Country: None (occurrence: None)
  Receive Date: 20090123
  Receipt Date: 20090123
  Transmission Date: 20090719
  Serious: No
  Sender: FDA-Public Use
  Company Number: None

PATIENT
  Age: 30 Year
  Sex: Female
  Weight: 56.6996 kg

DRUGS (1)
  1. OCELLA BARR LABORATORIES [Suspect]
     Indication: CONTRACEPTION
     Dosage: DAILY
     Dates: start: 20080812, end: 20090116

REACTIONS (16)
  - DIZZINESS [None]
  - DRUG INEFFECTIVE [None]
  - FATIGUE [None]
  - FEELING ABNORMAL [None]
  - GASTROINTESTINAL DISORDER [None]
  - HEADACHE [None]
  - HORMONE LEVEL ABNORMAL [None]
  - HOT FLUSH [None]
  - INCREASED APPETITE [None]
  - MENOPAUSAL SYMPTOMS [None]
  - MENORRHAGIA [None]
  - MOOD SWINGS [None]
  - MUSCLE SPASMS [None]
  - NIGHT SWEATS [None]
  - PRODUCT QUALITY ISSUE [None]
  - WEIGHT INCREASED [None]
